FAERS Safety Report 5533040-X (Version None)
Quarter: 2007Q4

REPORT INFORMATION
  Report Type: 
  Country: None (occurrence: None)
  Receive Date: 20071120
  Receipt Date: 20071015
  Transmission Date: 20080405
  Serious: No
  Sender: FDA-Public Use
  Company Number: WAES 0710USA03116

PATIENT
  Sex: Male

DRUGS (3)
  1. JANUVIA [Suspect]
     Dosage: PO
     Route: 048
     Dates: start: 20070915
  2. ATENOLOL [Concomitant]
  3. HYDRALAZINE [Concomitant]

REACTIONS (1)
  - BLOOD PRESSURE INCREASED [None]
